FAERS Safety Report 17455563 (Version 5)
Quarter: 2020Q3

REPORT INFORMATION
  Report Type: Spontaneous
  Country: NO (occurrence: NO)
  Receive Date: 20200225
  Receipt Date: 20200701
  Transmission Date: 20201102
  Serious: Yes (Other)
  Sender: FDA-Public Use
  Company Number: NO-CELLTRION INC.-2020NO019409

PATIENT

DRUGS (6)
  1. PREDNISOLONE. [Concomitant]
     Active Substance: PREDNISOLONE
     Dosage: 10?20 MG DAILY, DOSE TAPPERED DOWN
  2. BUDESONIDE. [Concomitant]
     Active Substance: BUDESONIDE
     Dosage: UNK
     Route: 048
  3. REMSIMA [Suspect]
     Active Substance: INFLIXIMAB
     Dosage: 10 MG/KG (800 MG), EVERY 4 WEEK
     Dates: start: 201512, end: 20160318
  4. INFLECTRA [Suspect]
     Active Substance: INFLIXIMAB-DYYB
     Indication: COLITIS ULCERATIVE
     Dosage: 800 MG, EVERY 4 WEEKS
     Dates: start: 20160422, end: 2016
  5. INFLECTRA [Suspect]
     Active Substance: INFLIXIMAB-DYYB
     Dosage: 1000 MG, EVERY 4 WEEKS
     Dates: start: 20160523, end: 20161109
  6. REMSIMA [Suspect]
     Active Substance: INFLIXIMAB
     Indication: COLITIS ULCERATIVE
     Dosage: 5 MG/KG (400 MG), WEEK 0, 2 AND 6
     Dates: start: 20151012, end: 201511

REACTIONS (4)
  - Large intestine polyp [Unknown]
  - Therapeutic product effect incomplete [Unknown]
  - Dysplasia [Unknown]
  - Off label use [Unknown]

NARRATIVE: CASE EVENT DATE: 2016
